FAERS Safety Report 9167363 (Version 2)
Quarter: 2013Q2

REPORT INFORMATION
  Report Type: Spontaneous
  Country: GB (occurrence: GB)
  Receive Date: 20130318
  Receipt Date: 20130507
  Transmission Date: 20140414
  Serious: Yes (Other)
  Sender: FDA-Public Use
  Company Number: GB-JNJFOC-20130304958

PATIENT
  Sex: Female

DRUGS (1)
  1. PREZISTA [Suspect]
     Indication: HIV INFECTION
     Route: 048

REACTIONS (2)
  - Liver function test abnormal [Unknown]
  - Exposure during pregnancy [Unknown]
